FAERS Safety Report 6573375-5 (Version None)
Quarter: 2010Q1

REPORT INFORMATION
  Report Type: 
  Country: None (occurrence: None)
  Receive Date: 20100204
  Receipt Date: 20100204
  Transmission Date: 20100710
  Serious: Yes (Other)
  Sender: FDA-Public Use
  Company Number: None

PATIENT
  Age: 82 Year
  Sex: Male
  Weight: 77.1115 kg

DRUGS (8)
  1. SILVER SULFADIAZINE [Suspect]
     Indication: THERMAL BURN
     Dosage: 1% DAILY
     Dates: start: 20091021, end: 20091201
  2. METOPROLOL TARTRATE [Concomitant]
  3. PANTOPRAZOLE [Concomitant]
  4. CRESTOR [Concomitant]
  5. LISINOPRIL [Concomitant]
  6. PLAVIX [Concomitant]
  7. METAMUCIL [Concomitant]
  8. ASPIRIN [Concomitant]

REACTIONS (5)
  - CONDITION AGGRAVATED [None]
  - DRUG HYPERSENSITIVITY [None]
  - IMPAIRED HEALING [None]
  - THERMAL BURN [None]
  - WOUND DRAINAGE [None]
